FAERS Safety Report 7391859-7 (Version None)
Quarter: 2011Q2

REPORT INFORMATION
  Report Type: 
  Country: None (occurrence: None)
  Receive Date: 20110404
  Receipt Date: 20110330
  Transmission Date: 20111010
  Serious: No
  Sender: FDA-Public Use
  Company Number: US-TEVA-274245USA

PATIENT
  Sex: Female
  Weight: 118.04 kg

DRUGS (2)
  1. MULTI-VITAMIN [Concomitant]
     Indication: MEDICAL DIET
     Route: 048
  2. PLAN B ONE-STEP [Suspect]
     Indication: POST COITAL CONTRACEPTION
     Route: 048
     Dates: start: 20110211, end: 20110211

REACTIONS (1)
  - MENSTRUATION DELAYED [None]
